FAERS Safety Report 24698145 (Version 1)
Quarter: 2024Q4

REPORT INFORMATION
  Report Type: Spontaneous
  Country: BR (occurrence: BR)
  Receive Date: 20241204
  Receipt Date: 20241204
  Transmission Date: 20250115
  Serious: Yes (Death, Hospitalization, Other)
  Sender: SANDOZ
  Company Number: BR-002147023-NVSC2024BR230308

PATIENT
  Sex: Female

DRUGS (1)
  1. EXELON [Suspect]
     Active Substance: RIVASTIGMINE TARTRATE
     Indication: Dementia Alzheimer^s type
     Dosage: 1 DOSAGE FORM, QD
     Route: 062
     Dates: start: 2017

REACTIONS (3)
  - Pneumonia [Fatal]
  - Bronchitis [Unknown]
  - Application site erythema [Unknown]

NARRATIVE: CASE EVENT DATE: 20230101
